FAERS Safety Report 25139888 (Version 1)
Quarter: 2025Q1

REPORT INFORMATION
  Report Type: Report from Study
  Country: US (occurrence: US)
  Receive Date: 20250331
  Receipt Date: 20250331
  Transmission Date: 20250408
  Serious: No
  Sender: ACADIA PHARMACEUTICALS
  Company Number: US-ACADIA PHARMACEUTICALS INC.-ACA-2025-PIM-003414

PATIENT
  Sex: Male

DRUGS (16)
  1. NUPLAZID [Suspect]
     Active Substance: PIMAVANSERIN TARTRATE
     Indication: Parkinsonism
     Dosage: 34 MILLIGRAM, QD
     Route: 048
     Dates: start: 20240319
  2. AZITHROMYCIN [Concomitant]
     Active Substance: AZITHROMYCIN
  3. BASAGLAR [Concomitant]
     Active Substance: INSULIN GLARGINE
  4. BUSPIRONE [Concomitant]
     Active Substance: BUSPIRONE HYDROCHLORIDE
  5. CARBIDOPA LEVODOPA [Concomitant]
     Active Substance: CARBIDOPA\LEVODOPA
  6. DEXAMETHASONE SODIUM PHOSPHATE [Concomitant]
     Active Substance: DEXAMETHASONE SODIUM PHOSPHATE
  7. FARXIGA [Concomitant]
     Active Substance: DAPAGLIFLOZIN PROPANEDIOL
  8. LANTUS SOLOSTAR [Concomitant]
     Active Substance: INSULIN GLARGINE
  9. LEVOFLOXACIN [Concomitant]
     Active Substance: LEVOFLOXACIN
  10. LISINOPRIL [Concomitant]
     Active Substance: LISINOPRIL
  11. LOSARTAN POTASSIUM [Concomitant]
     Active Substance: LOSARTAN POTASSIUM
  12. METFORMIN [Concomitant]
     Active Substance: METFORMIN HYDROCHLORIDE
  13. NOVOLIN R [Concomitant]
     Active Substance: INSULIN HUMAN
  14. OZEMPIC [Concomitant]
     Active Substance: SEMAGLUTIDE
  15. RIVASTIGMINE [Concomitant]
     Active Substance: RIVASTIGMINE
  16. XARELTO [Concomitant]
     Active Substance: RIVAROXABAN

REACTIONS (2)
  - Insomnia [Unknown]
  - Product dose omission issue [Unknown]
